FAERS Safety Report 7391759-2 (Version None)
Quarter: 2011Q2

REPORT INFORMATION
  Report Type: 
  Country: None (occurrence: None)
  Receive Date: 20110404
  Receipt Date: 20110325
  Transmission Date: 20111010
  Serious: Yes (Hospitalization)
  Sender: FDA-Public Use
  Company Number: US-ROCHE-740629

PATIENT
  Age: 49 Year
  Sex: Female

DRUGS (12)
  1. ESOMEPRAZOLE [Concomitant]
  2. CARBOPLATIN [Suspect]
     Indication: BREAST CANCER
     Route: 042
     Dates: start: 20100923
  3. PNEUMOVAX 23 [Concomitant]
     Dosage: PNEUMOCOCCAL VAC NONGSK
  4. FENTANYL [Concomitant]
  5. LORTAB [Concomitant]
  6. DOCETAXEL [Suspect]
     Indication: BREAST CANCER
     Route: 042
     Dates: start: 20100923
  7. TRASTUZUMAB [Suspect]
     Indication: BREAST CANCER
     Dosage: LOADING DOSE
     Route: 042
     Dates: start: 20100923
  8. GRANULOCYTE COLONY STIMULATING FACTOR [Concomitant]
  9. IBUPROFEN [Concomitant]
  10. PREDNISONE [Concomitant]
  11. TRASTUZUMAB [Suspect]
     Dosage: MAINTENANCE DOSE; FORM: INJECTION
     Route: 042
     Dates: start: 20100930
  12. FLU VACCINE [Concomitant]
     Dosage: INFLUENZA VIRUS VAC POLYV

REACTIONS (10)
  - ALANINE AMINOTRANSFERASE INCREASED [None]
  - PYREXIA [None]
  - NEUTROPENIA [None]
  - ARTHRALGIA [None]
  - BLOOD ALKALINE PHOSPHATASE INCREASED [None]
  - ASPARTATE AMINOTRANSFERASE INCREASED [None]
  - GASTRITIS [None]
  - HAEMOGLOBIN DECREASED [None]
  - CHEST PAIN [None]
  - LEUKOPENIA [None]
